FAERS Safety Report 21397250 (Version 4)
Quarter: 2022Q4

REPORT INFORMATION
  Report Type: Report from Study
  Country: US (occurrence: US)
  Receive Date: 20220930
  Receipt Date: 20221130
  Transmission Date: 20230113
  Serious: Yes (Disabling, Other)
  Sender: FDA-Public Use
  Company Number: US-TAIHO-2022-001011

PATIENT
  Age: 79 Year
  Sex: Female

DRUGS (3)
  1. LONSURF [Suspect]
     Active Substance: TIPIRACIL HYDROCHLORIDE\TRIFLURIDINE
     Indication: Colon cancer stage IV
     Dosage: CURRENT CYCLE UNKNOWN
     Route: 048
     Dates: start: 20220919
  2. LONSURF [Suspect]
     Active Substance: TIPIRACIL HYDROCHLORIDE\TRIFLURIDINE
     Dosage: CYCLE UNKNOWN
     Route: 048
     Dates: start: 20221017
  3. AVASTIN [Concomitant]
     Active Substance: BEVACIZUMAB
     Indication: Product used for unknown indication

REACTIONS (10)
  - Haematochezia [Recovered/Resolved]
  - Asthenia [Unknown]
  - Carcinoembryonic antigen increased [Unknown]
  - Weight decreased [Unknown]
  - Pain [Recovered/Resolved]
  - Decreased appetite [Unknown]
  - Fatigue [Recovered/Resolved]
  - Nausea [Recovered/Resolved]
  - Product communication issue [Unknown]
  - Product dose omission in error [Unknown]
